FAERS Safety Report 13107133 (Version 1)
Quarter: 2017Q1

REPORT INFORMATION
  Report Type: Report from Study
  Country: US (occurrence: US)
  Receive Date: 20170111
  Receipt Date: 20170111
  Transmission Date: 20170428
  Serious: Yes (Other)
  Sender: FDA-Public Use
  Company Number: US-AMGEN-USASL2017003263

PATIENT
  Age: 65 Year
  Sex: Male

DRUGS (1)
  1. REPATHA [Suspect]
     Active Substance: EVOLOCUMAB
     Indication: LIPOPROTEIN (A) INCREASED
     Dosage: 140 MG, Q2WK
     Route: 065
     Dates: start: 20160531, end: 20160914

REACTIONS (1)
  - Thyroid cancer [Unknown]
